FAERS Safety Report 7667345-3 (Version None)
Quarter: 2011Q3

REPORT INFORMATION
  Report Type: 
  Country: None (occurrence: None)
  Receive Date: 20110806
  Receipt Date: 20110302
  Transmission Date: 20111222
  Serious: No
  Sender: FDA-Public Use
  Company Number: US-ABBOTT-11P-163-0708472-00

PATIENT
  Sex: Female
  Weight: 80.358 kg

DRUGS (7)
  1. NIASPAN [Suspect]
     Indication: PRODUCT USED FOR UNKNOWN INDICATION
     Dates: start: 20110103, end: 20110119
  2. NIASPAN [Suspect]
     Dates: start: 20110207, end: 20110214
  3. ASPIRIN [Concomitant]
     Indication: PRODUCT USED FOR UNKNOWN INDICATION
  4. CALCIUM ACETATE [Concomitant]
     Indication: PRODUCT USED FOR UNKNOWN INDICATION
  5. NIASPAN [Suspect]
     Dates: start: 20110214
  6. MIDRIN [Concomitant]
     Indication: MIGRAINE
  7. NIASPAN [Suspect]
     Dates: start: 20110119, end: 20110207

REACTIONS (6)
  - ABDOMINAL PAIN UPPER [None]
  - DIZZINESS [None]
  - FLUSHING [None]
  - HEADACHE [None]
  - FEELING ABNORMAL [None]
  - FEELING HOT [None]
